FAERS Safety Report 19682114 (Version 2)
Quarter: 2021Q3

REPORT INFORMATION
  Report Type: Report from Study
  Country: US (occurrence: US)
  Receive Date: 20210810
  Receipt Date: 20210908
  Transmission Date: 20211014
  Serious: Yes (Other)
  Sender: FDA-Public Use
  Company Number: US-B.I. PHARMACEUTICALS,INC./RIDGEFIELD-2021-BI-120054

PATIENT
  Age: 72 Year
  Sex: Male

DRUGS (2)
  1. OFEV [Suspect]
     Active Substance: NINTEDANIB
     Dosage: 150 MG BID
     Route: 048
     Dates: start: 20210615, end: 20210824
  2. OFEV [Suspect]
     Active Substance: NINTEDANIB
     Indication: IDIOPATHIC PULMONARY FIBROSIS
     Dosage: 150 MG BID
     Route: 048
     Dates: start: 20210408, end: 20210606

REACTIONS (3)
  - Rectal haemorrhage [Recovered/Resolved]
  - Liver function test increased [Unknown]
  - Diarrhoea [Not Recovered/Not Resolved]
